FAERS Safety Report 13688475 (Version 2)
Quarter: 2017Q3

REPORT INFORMATION
  Report Type: Report from Study
  Country: BE (occurrence: BE)
  Receive Date: 20170626
  Receipt Date: 20170725
  Transmission Date: 20171127
  Serious: Yes (Death, Life-Threatening, Hospitalization, Other)
  Sender: FDA-Public Use
  Company Number: BE-AMGEN-BELNI2017096135

PATIENT
  Age: 75 Year
  Sex: Female
  Weight: 58 kg

DRUGS (16)
  1. TOTALIP [Concomitant]
     Active Substance: ATORVASTATIN
     Dosage: 10 MG, QD (AT NIGHT)
  2. REVLIMID [Concomitant]
     Active Substance: LENALIDOMIDE
     Dosage: 5 MG, DAY 21/28
     Dates: start: 201607, end: 201703
  3. CARFILZOMIB [Suspect]
     Active Substance: CARFILZOMIB
     Indication: PLASMA CELL MYELOMA
     Dosage: 56 MG/M2, J9
     Route: 042
     Dates: start: 20170607, end: 20170615
  4. ACICLOVIR [Concomitant]
     Active Substance: ACYCLOVIR
     Dosage: 400 MG, (1/2 TABLET TWICE A DAY)
  5. TRAZODONE [Concomitant]
     Active Substance: TRAZODONE HYDROCHLORIDE
     Dosage: 100 MG, 1 TABLET AT NIGHT
  6. NEXIAM [Concomitant]
     Active Substance: ESOMEPRAZOLE
     Dosage: 20 DF, QD (IN THE MORNING)
  7. DEXAMETHASONE. [Concomitant]
     Active Substance: DEXAMETHASONE
     Dosage: 20 MG, QWK
  8. ACICLOVIR [Concomitant]
     Active Substance: ACYCLOVIR
     Dosage: 200 MG, UNK
  9. DARATUMUMAB [Concomitant]
     Active Substance: DARATUMUMAB
     Dosage: UNK
     Dates: start: 201605, end: 201606
  10. DAFLON [Concomitant]
     Active Substance: DIOSMIN\HESPERIDIN
     Dosage: 500 MG, 1 TABLET TWICE A DAY
  11. LERCANIDIPINE [Concomitant]
     Active Substance: LERCANIDIPINE
     Dosage: 10 MG, BID (AT NOON AND AT NIGHT)
  12. APROVEL [Concomitant]
     Active Substance: IRBESARTAN
     Dosage: 300 (1/2 PER DAY IN THE MORNING)
  13. STEOVIT D3 [Concomitant]
     Active Substance: CALCIUM CARBONATE\CHOLECALCIFEROL
     Dosage: 1 DF, QD (TABLET IN THE MORNING)
  14. CALCIUM [Concomitant]
     Active Substance: CALCIUM
     Dosage: 1 DF, BID (AT NOON AND AT NIGHT)
  15. BEFACT [Concomitant]
     Dosage: 1 DF, QD
  16. BISOPROLOL [Concomitant]
     Active Substance: BISOPROLOL
     Dosage: 5 MG, (1/2 TABLET ONCE DAY IN THE MORNING)

REACTIONS (3)
  - Hypertension [Fatal]
  - Acute pulmonary oedema [Fatal]
  - Acute myocardial infarction [Fatal]

NARRATIVE: CASE EVENT DATE: 20170616
